FAERS Safety Report 10259698 (Version 1)
Quarter: 2014Q2

REPORT INFORMATION
  Report Type: Spontaneous
  Country: US (occurrence: US)
  Receive Date: 20140625
  Receipt Date: 20140625
  Transmission Date: 20141212
  Serious: Yes (Other)
  Sender: FDA-Public Use
  Company Number: US-TEVA-489962USA

PATIENT
  Age: 58 Year
  Sex: Male

DRUGS (4)
  1. SYNRIBO [Suspect]
     Indication: CHRONIC MYELOID LEUKAEMIA
     Dosage: INDUCTION THERAPY, 14 DAY OF 28 DAY CYCLE
  2. SYNRIBO [Suspect]
     Dosage: 7 DAYS OF 28 DAY CYCLE
  3. SYNRIBO [Suspect]
     Dosage: TWICE DAILY FOR 2 DAYS OF 28 DAY CYCLE
  4. VALIUM [Concomitant]

REACTIONS (3)
  - Unresponsive to stimuli [Recovered/Resolved]
  - Incoherent [Recovered/Resolved]
  - Fall [Recovered/Resolved]
